FAERS Safety Report 16279086 (Version 1)
Quarter: 2019Q2

REPORT INFORMATION
  Report Type: Spontaneous
  Country: GB (occurrence: GB)
  Receive Date: 20190506
  Receipt Date: 20190506
  Transmission Date: 20190711
  Serious: Yes (Other)
  Sender: FDA-Public Use
  Company Number: GB-SA-2019SA116309

PATIENT
  Age: 78 Year
  Sex: Female
  Weight: 52 kg

DRUGS (18)
  1. CALCICHEW [Concomitant]
     Active Substance: CALCIUM CARBONATE
  2. MOXONIDINE [Concomitant]
     Active Substance: MOXONIDINE
  3. LEVOTHYROXINE. [Concomitant]
     Active Substance: LEVOTHYROXINE
     Dosage: UNK, UNK
  4. SULFASALAZINE. [Suspect]
     Active Substance: SULFASALAZINE
     Indication: RHEUMATOID ARTHRITIS
     Dosage: 3 G, QD
     Route: 048
     Dates: start: 1999, end: 20190228
  5. ALENDRONIC ACID [Concomitant]
     Active Substance: ALENDRONIC ACID
  6. ATORVASTATIN [Concomitant]
     Active Substance: ATORVASTATIN
  7. IRON [Concomitant]
     Active Substance: IRON
  8. RAMIPRIL. [Concomitant]
     Active Substance: RAMIPRIL
  9. DOXAZOSIN [Concomitant]
     Active Substance: DOXAZOSIN\DOXAZOSIN MESYLATE
  10. ESOMEPRAZOLE. [Concomitant]
     Active Substance: ESOMEPRAZOLE MAGNESIUM
  11. LEFLUNOMIDE. [Suspect]
     Active Substance: LEFLUNOMIDE
     Indication: RHEUMATOID ARTHRITIS
     Dosage: 10 MG, QD
     Route: 048
     Dates: start: 1999, end: 20190301
  12. ZOMORPH [Concomitant]
     Active Substance: MORPHINE SULFATE
  13. HYDRALAZINE [Concomitant]
     Active Substance: HYDRALAZINE HYDROCHLORIDE
  14. BISOPROLOL [Concomitant]
     Active Substance: BISOPROLOL
  15. PREDNISOLONE. [Concomitant]
     Active Substance: PREDNISOLONE
  16. ACETYLSALICYLIC ACID [Concomitant]
     Active Substance: ASPIRIN
  17. FUROSEMIDE. [Concomitant]
     Active Substance: FUROSEMIDE
  18. AMLODIPINE [Concomitant]
     Active Substance: AMLODIPINE BESYLATE
     Dosage: UNK, UNK

REACTIONS (4)
  - Haemolytic anaemia [Recovering/Resolving]
  - Pancytopenia [Unknown]
  - Lethargy [Unknown]
  - Dyspnoea [Unknown]

NARRATIVE: CASE EVENT DATE: 20190220
